FAERS Safety Report 8021438-X (Version None)
Quarter: 2012Q1

REPORT INFORMATION
  Report Type: 
  Country: None (occurrence: None)
  Receive Date: 20120104
  Receipt Date: 20111229
  Transmission Date: 20120608
  Serious: Yes (Hospitalization, Other)
  Sender: FDA-Public Use
  Company Number: US-SANOFI-AVENTIS-2012SA000258

PATIENT
  Age: 45 Year
  Sex: Female

DRUGS (4)
  1. SOLOSTAR [Suspect]
     Dates: start: 20100101
  2. HUMALOG [Concomitant]
     Dosage: DOSE:100 UNIT(S)
  3. LANTUS [Suspect]
     Dosage: DOSE:50 UNIT(S)
     Route: 058
     Dates: start: 20100101
  4. NOVOLOG [Concomitant]
     Dosage: DOSE:100 UNIT(S)

REACTIONS (1)
  - LEG AMPUTATION [None]
